FAERS Safety Report 7768266-8 (Version None)
Quarter: 2011Q3

REPORT INFORMATION
  Report Type: 
  Country: None (occurrence: None)
  Receive Date: 20110922
  Receipt Date: 20100527
  Transmission Date: 20111222
  Serious: No
  Sender: FDA-Public Use
  Company Number: US-ASTRAZENECA-2010SE49594

PATIENT
  Age: 41 Year
  Sex: Female

DRUGS (13)
  1. PAXIL CR [Concomitant]
     Dates: start: 20040609
  2. ABILIFY [Concomitant]
     Dates: start: 20050308
  3. SYNTHROID [Concomitant]
     Dates: start: 20090101
  4. ZOCOR [Concomitant]
     Dates: start: 20050623
  5. DETROL [Concomitant]
     Dates: start: 20050126
  6. LEVAQUIN [Concomitant]
     Dates: start: 20050314
  7. LEXAPRO [Concomitant]
     Dates: start: 20050303
  8. SEROQUEL [Suspect]
     Route: 048
     Dates: start: 20040609
  9. ZYRTEC [Concomitant]
     Dates: start: 20041020
  10. TRAZODONE HYDROCHLORIDE [Concomitant]
     Dates: start: 20041118
  11. NORVASC [Concomitant]
     Dates: start: 20050314
  12. LEVOXYL [Concomitant]
     Dates: start: 20040609
  13. RANITIDINE [Concomitant]
     Dates: start: 20040630

REACTIONS (7)
  - TYPE 2 DIABETES MELLITUS [None]
  - HYPOGLYCAEMIA [None]
  - ANXIETY [None]
  - OBESITY [None]
  - DEPRESSION [None]
  - HYPOTHYROIDISM [None]
  - POST-TRAUMATIC STRESS DISORDER [None]
